FAERS Safety Report 7761261-4 (Version None)
Quarter: 2011Q3

REPORT INFORMATION
  Report Type: 
  Country: None (occurrence: None)
  Receive Date: 20110920
  Receipt Date: 20110909
  Transmission Date: 20111222
  Serious: Yes (Other)
  Sender: FDA-Public Use
  Company Number: US-US-EMD SERONO, INC.-7036632

PATIENT
  Sex: Female

DRUGS (1)
  1. REBIF [Suspect]
     Indication: MULTIPLE SCLEROSIS
     Route: 058
     Dates: start: 20101027

REACTIONS (7)
  - HEADACHE [None]
  - CATARACT [None]
  - FATIGUE [None]
  - CELLULITIS [None]
  - HYPOAESTHESIA [None]
  - FEELING OF BODY TEMPERATURE CHANGE [None]
  - INJECTION SITE ERYTHEMA [None]
